FAERS Safety Report 4734770-X (Version None)
Quarter: 2005Q3

REPORT INFORMATION
  Report Type: 
  Country: None (occurrence: None)
  Receive Date: 20050804
  Receipt Date: 20050726
  Transmission Date: 20060218
  Serious: Yes (Hospitalization)
  Sender: FDA-Public Use
  Company Number: FR-GLAXOSMITHKLINE-B0388860A

PATIENT
  Age: 64 Year
  Sex: Male
  Weight: 53 kg

DRUGS (7)
  1. AUGMENTIN '125' [Suspect]
     Indication: SUPERINFECTION LUNG
     Dosage: 1G THREE TIMES PER DAY
     Route: 048
     Dates: start: 20050309, end: 20050326
  2. FLAGYL [Suspect]
     Dosage: 3UNIT PER DAY
     Route: 048
     Dates: start: 20050311, end: 20050325
  3. OMEPRAZOLE [Suspect]
     Dosage: 20MG PER DAY
     Route: 048
     Dates: start: 20050309
  4. TRIFLUCAN [Suspect]
     Dosage: 100MG PER DAY
     Route: 048
     Dates: start: 20050315, end: 20050326
  5. LOVENOX [Suspect]
     Dosage: 1UNIT PER DAY
     Route: 058
     Dates: start: 20050309, end: 20050320
  6. OXALIPLATIN [Concomitant]
     Route: 042
     Dates: start: 20050324
  7. GEMZAR [Concomitant]
     Route: 042
     Dates: start: 20050324

REACTIONS (5)
  - BLOOD ALKALINE PHOSPHATASE INCREASED [None]
  - BLOOD PHOSPHORUS INCREASED [None]
  - FACTOR V DEFICIENCY [None]
  - FACTOR VII DEFICIENCY [None]
  - GAMMA-GLUTAMYLTRANSFERASE INCREASED [None]
